FAERS Safety Report 11516527 (Version 1)
Quarter: 2015Q3

REPORT INFORMATION
  Report Type: Spontaneous
  Country: US (occurrence: US)
  Receive Date: 20150917
  Receipt Date: 20150917
  Transmission Date: 20151125
  Serious: Yes (Death)
  Sender: FDA-Public Use
  Company Number: US-BAYER-2015-418322

PATIENT
  Age: 46 Year
  Sex: Male

DRUGS (1)
  1. KOGENATE FS [Suspect]
     Active Substance: ANTIHEMOPHILIC FACTOR, HUMAN RECOMBINANT
     Indication: FACTOR VIII DEFICIENCY
     Dosage: 4000 U, DAILY FOR 5 DAYS
     Route: 042
     Dates: start: 20140512, end: 20150802

REACTIONS (1)
  - Death [Fatal]

NARRATIVE: CASE EVENT DATE: 20150802
